FAERS Safety Report 16562188 (Version 3)
Quarter: 2019Q3

REPORT INFORMATION
  Report Type: Report from Study
  Country: US (occurrence: US)
  Receive Date: 20190711
  Receipt Date: 20190823
  Transmission Date: 20191004
  Serious: Yes (Hospitalization)
  Sender: FDA-Public Use
  Company Number: US-ACTELION-A-US2018-184078

PATIENT
  Sex: Male
  Weight: 108.84 kg

DRUGS (5)
  1. REMODULIN [Concomitant]
     Active Substance: TREPROSTINIL
     Dosage: 15 NG/KG, PER MIN
  2. UPTRAVI [Suspect]
     Active Substance: SELEXIPAG
     Dosage: 1600 MCG, BID
     Route: 048
     Dates: start: 20190327
  3. UPTRAVI [Suspect]
     Active Substance: SELEXIPAG
     Indication: PULMONARY ARTERIAL HYPERTENSION
     Dosage: 800 MCG, BID
     Route: 048
  4. LETAIRIS [Suspect]
     Active Substance: AMBRISENTAN
     Indication: PULMONARY HYPERTENSION
     Dosage: 10 MG, QD
     Route: 065
     Dates: start: 20190404
  5. SILDENAFIL. [Suspect]
     Active Substance: SILDENAFIL
     Indication: PRODUCT USED FOR UNKNOWN INDICATION
     Dosage: 20 MG, TID
     Route: 048

REACTIONS (18)
  - Dry skin [Unknown]
  - Influenza [Unknown]
  - Flushing [Unknown]
  - Hot flush [Unknown]
  - Accidental overdose [Unknown]
  - Constipation [Unknown]
  - Blood potassium decreased [Unknown]
  - Dyspnoea [Unknown]
  - Pain in jaw [Unknown]
  - Catheterisation cardiac [Unknown]
  - Pulmonary arterial hypertension [Unknown]
  - Lung transplant [Not Recovered/Not Resolved]
  - Feeling hot [Unknown]
  - Dehydration [Unknown]
  - Dysuria [Unknown]
  - Condition aggravated [Unknown]
  - Headache [Unknown]
  - Pain in extremity [Unknown]
